FAERS Safety Report 6836969-5 (Version None)
Quarter: 2010Q3

REPORT INFORMATION
  Report Type: 
  Country: None (occurrence: None)
  Receive Date: 20100713
  Receipt Date: 20070424
  Transmission Date: 20110219
  Serious: No
  Sender: FDA-Public Use
  Company Number: US-PFIZER INC-2007035323

PATIENT
  Sex: Female
  Weight: 90.72 kg

DRUGS (3)
  1. CHANTIX [Suspect]
     Indication: SMOKING CESSATION THERAPY
     Dosage: 0.5 MG ONCE
     Dates: start: 20070422, end: 20070422
  2. EFFEXOR [Concomitant]
  3. VALSARTAN [Concomitant]

REACTIONS (5)
  - ABDOMINAL PAIN [None]
  - BLADDER PAIN [None]
  - DIARRHOEA [None]
  - FATIGUE [None]
  - HYPERHIDROSIS [None]
